FAERS Safety Report 11092680 (Version 1)
Quarter: 2015Q2

REPORT INFORMATION
  Report Type: Spontaneous
  Country: US (occurrence: None)
  Receive Date: 20150505
  Receipt Date: 20150505
  Transmission Date: 20150821
  Serious: Yes (Hospitalization)
  Sender: FDA-Public Use
  Company Number: None

PATIENT
  Age: 27 Year
  Sex: Male
  Weight: 106.1 kg

DRUGS (6)
  1. ETOPOSIDE. [Suspect]
     Active Substance: ETOPOSIDE
  2. DOXORUBICIN [Suspect]
     Active Substance: DOXORUBICIN
  3. CYCLOPHOSPHAMIDE. [Suspect]
     Active Substance: CYCLOPHOSPHAMIDE
  4. RITUXIMAB [Suspect]
     Active Substance: RITUXIMAB
  5. VINCRISTINE [Suspect]
     Active Substance: VINCRISTINE
  6. PREDNISONE. [Suspect]
     Active Substance: PREDNISONE

REACTIONS (3)
  - Constipation [None]
  - Vomiting [None]
  - Small intestinal obstruction [None]

NARRATIVE: CASE EVENT DATE: 20150424
